FAERS Safety Report 16672338 (Version 1)
Quarter: 2019Q3

REPORT INFORMATION
  Report Type: Spontaneous
  Country: RO (occurrence: RO)
  Receive Date: 20190806
  Receipt Date: 20190806
  Transmission Date: 20191004
  Serious: Yes (Hospitalization, Disabling)
  Sender: FDA-Public Use
  Company Number: RO-ABBVIE-19K-135-2874494-00

PATIENT
  Age: 55 Year
  Sex: Male
  Weight: 110 kg

DRUGS (7)
  1. HUMIRA [Suspect]
     Active Substance: ADALIMUMAB
     Route: 058
     Dates: start: 201801, end: 201904
  2. LERIDIP [Concomitant]
     Indication: HYPERTENSION
     Route: 048
     Dates: start: 20130220
  3. FUROSEMID [Concomitant]
     Active Substance: FUROSEMIDE
     Indication: HYPERTENSION
     Route: 048
     Dates: start: 20140930
  4. ATACAND [Concomitant]
     Active Substance: CANDESARTAN CILEXETIL
     Indication: HYPERTENSION
     Route: 048
     Dates: start: 20180825
  5. HUMIRA [Suspect]
     Active Substance: ADALIMUMAB
     Indication: ANKYLOSING SPONDYLITIS
     Dosage: CHANGED ADMINISTRATION FREQUENCY
     Route: 058
     Dates: start: 201003
  6. INDAPAMID [Concomitant]
     Active Substance: INDAPAMIDE
     Indication: HYPERTENSION
     Route: 048
     Dates: start: 20151012
  7. ASPENTER [Concomitant]
     Active Substance: ASPIRIN
     Indication: HYPERTENSION
     Route: 048
     Dates: start: 20100106

REACTIONS (8)
  - Arthritis [Unknown]
  - Arthritis bacterial [Unknown]
  - Arthritis bacterial [Recovering/Resolving]
  - Staphylococcal sepsis [Recovering/Resolving]
  - Pyrexia [Recovering/Resolving]
  - Groin pain [Recovering/Resolving]
  - Chills [Recovering/Resolving]
  - Inflammation [Recovering/Resolving]

NARRATIVE: CASE EVENT DATE: 20190428
